FAERS Safety Report 15559573 (Version 1)
Quarter: 2018Q4

REPORT INFORMATION
  Report Type: Spontaneous
  Country: US (occurrence: US)
  Receive Date: 20181022
  Receipt Date: 20181022
  Transmission Date: 20190205
  Serious: Yes (Hospitalization)
  Sender: FDA-Public Use
  Company Number: None

PATIENT
  Age: 66 Year
  Sex: Female
  Weight: 94.34 kg

DRUGS (3)
  1. LEUPROLIDE ACETATE. [Suspect]
     Active Substance: LEUPROLIDE ACETATE
     Dates: end: 20180424
  2. LISINOPRIL. [Concomitant]
     Active Substance: LISINOPRIL
  3. CASODEX [Suspect]
     Active Substance: BICALUTAMIDE
     Dates: end: 20180911

REACTIONS (5)
  - Hypotension [None]
  - Pollakiuria [None]
  - Dizziness [None]
  - Alcohol abuse [None]
  - Tobacco user [None]

NARRATIVE: CASE EVENT DATE: 20180912
